FAERS Safety Report 9017973 (Version 1)
Quarter: 2013Q1

REPORT INFORMATION
  Report Type: Spontaneous
  Country: AU (occurrence: AU)
  Receive Date: 20130117
  Receipt Date: 20130117
  Transmission Date: 20140127
  Serious: Yes (Hospitalization)
  Sender: FDA-Public Use
  Company Number: AU-B.I. PHARMACEUTICALS,INC./RIDGEFIELD-2013-AU-00018AU

PATIENT
  Age: 89 Year
  Sex: Male
  Weight: 64.2 kg

DRUGS (6)
  1. PRADAXA [Suspect]
     Indication: ATRIAL FIBRILLATION
  2. ESOMEPRAZOLE [Concomitant]
  3. FRUSEMIDE [Concomitant]
  4. PARACETAMOL [Concomitant]
  5. MICARDIS PLUS [Concomitant]
     Dosage: 80/12.5 MG
  6. AMLODIPINE [Concomitant]

REACTIONS (2)
  - Dyspnoea [Recovered/Resolved]
  - Renal impairment [Unknown]
